FAERS Safety Report 4561137-X (Version None)
Quarter: 2005Q1

REPORT INFORMATION
  Report Type: 
  Country: None (occurrence: None)
  Receive Date: 20050124
  Receipt Date: 20050111
  Transmission Date: 20050727
  Serious: Yes (Hospitalization)
  Sender: FDA-Public Use
  Company Number: 2005010321

PATIENT
  Age: 69 Year
  Sex: Female

DRUGS (5)
  1. CELEBREX [Suspect]
     Indication: OSTEOARTHRITIS
     Dosage: 200 MG 1 IN 1 D
     Dates: start: 20001122, end: 20041201
  2. PERINDOPRIL (PERINDORPIL) [Concomitant]
  3. ACETYLSALICYLIC ACID SRT [Concomitant]
  4. DIOSMIN (DIOSMIN) [Concomitant]
  5. LABETALOL HYDROCHLORIDE [Concomitant]

REACTIONS (1)
  - TRIPLE VESSEL BYPASS GRAFT [None]
